FAERS Safety Report 14967474 (Version 2)
Quarter: 2018Q3

REPORT INFORMATION
  Report Type: Report from Study
  Country: None (occurrence: HN)
  Receive Date: 20180604
  Receipt Date: 20180705
  Transmission Date: 20181010
  Serious: Yes (Hospitalization)
  Sender: FDA-Public Use
  Company Number: HN-ABBVIE-18K-074-2375537-00

PATIENT
  Age: 33 Year
  Sex: Female

DRUGS (1)
  1. HUMIRA [Suspect]
     Active Substance: ADALIMUMAB
     Indication: PSORIATIC ARTHROPATHY
     Route: 058
     Dates: start: 20130101

REACTIONS (3)
  - Exposure during pregnancy [Unknown]
  - Wound [Recovering/Resolving]
  - Ectopic pregnancy [Not Recovered/Not Resolved]

NARRATIVE: CASE EVENT DATE: 20180531
